FAERS Safety Report 11808368 (Version 1)
Quarter: 2015Q4

REPORT INFORMATION
  Report Type: Spontaneous
  Country: US (occurrence: US)
  Receive Date: 20151207
  Receipt Date: 20151207
  Transmission Date: 20160305
  Serious: No
  Sender: FDA-Public Use
  Company Number: US-ROCHE-1624894

PATIENT
  Age: 53 Year
  Sex: Female

DRUGS (2)
  1. VALIUM [Suspect]
     Active Substance: DIAZEPAM
     Indication: PAROXYSMAL CHOREOATHETOSIS
  2. VALIUM [Suspect]
     Active Substance: DIAZEPAM
     Indication: TREMOR
     Dosage: DOSE: 5-15 MG?AS NEEDED
     Route: 048

REACTIONS (7)
  - Gene mutation [Unknown]
  - Hot flush [Unknown]
  - Somnolence [Unknown]
  - Eye disorder [Unknown]
  - Accident [Unknown]
  - Tremor [Unknown]
  - Pain [Unknown]
